FAERS Safety Report 10075950 (Version 1)
Quarter: 2014Q2

REPORT INFORMATION
  Report Type: Report from Study
  Country: AU (occurrence: AU)
  Receive Date: 20140414
  Receipt Date: 20140414
  Transmission Date: 20141212
  Serious: Yes (Hospitalization)
  Sender: FDA-Public Use
  Company Number: PHHY2014AU043449

PATIENT
  Sex: Female

DRUGS (2)
  1. CLOZARIL [Suspect]
     Dosage: 300 MG, UNK
     Dates: start: 19981216
  2. CLOZARIL [Suspect]
     Dosage: UNK (OVERDOSE)

REACTIONS (4)
  - Suicide attempt [Unknown]
  - Stress [Unknown]
  - Intentional overdose [Unknown]
  - Loss of consciousness [Unknown]
